FAERS Safety Report 15543145 (Version 2)
Quarter: 2019Q2

REPORT INFORMATION
  Report Type: Spontaneous
  Country: CA (occurrence: CA)
  Receive Date: 20181023
  Receipt Date: 20190403
  Transmission Date: 20190711
  Serious: Yes (Death)
  Sender: FDA-Public Use
  Company Number: CA-PFIZER INC-2018428349

PATIENT
  Age: 62 Year
  Sex: Female
  Weight: 103.5 kg

DRUGS (2)
  1. CODEINE [Suspect]
     Active Substance: CODEINE
     Dosage: UNK
  2. VENLAFAXINE HCL [Suspect]
     Active Substance: VENLAFAXINE HYDROCHLORIDE
     Dosage: UNK

REACTIONS (3)
  - Overdose [Fatal]
  - Drug level above therapeutic [Fatal]
  - Antidepressant drug level above therapeutic [Fatal]

NARRATIVE: CASE EVENT DATE: 2016
